FAERS Safety Report 23505898 (Version 1)
Quarter: 2024Q1

REPORT INFORMATION
  Report Type: Spontaneous
  Country: BR (occurrence: BR)
  Receive Date: 20240209
  Receipt Date: 20240209
  Transmission Date: 20240409
  Serious: Yes (Other)
  Sender: FDA-Public Use
  Company Number: BR-TAKEDA-2024TUS011777

PATIENT
  Weight: 35 kg

DRUGS (1)
  1. DEXILANT [Suspect]
     Active Substance: DEXLANSOPRAZOLE
     Indication: Eosinophilic oesophagitis
     Dosage: 30 MILLIGRAM, BID
     Route: 048

REACTIONS (4)
  - Autism spectrum disorder [Unknown]
  - Off label use [Unknown]
  - Product use issue [Unknown]
  - Wrong technique in product usage process [Unknown]
